FAERS Safety Report 17774354 (Version 1)
Quarter: 2020Q2

REPORT INFORMATION
  Report Type: Spontaneous
  Country: US (occurrence: US)
  Receive Date: 20200512
  Receipt Date: 20200512
  Transmission Date: 20200714
  Serious: Yes (Hospitalization)
  Sender: FDA-Public Use
  Company Number: None

PATIENT
  Age: 58 Year
  Sex: Female

DRUGS (8)
  1. MYCOPHENOLIC 360MG DR TAB [Suspect]
     Active Substance: MYCOPHENOLIC ACID
     Route: 048
     Dates: start: 20160616
  2. MYCOPHENOLIC 360MG DR TAB [Suspect]
     Active Substance: MYCOPHENOLIC ACID
     Indication: RENAL TRANSPLANT
     Route: 048
     Dates: start: 20160616
  3. TYLENOL [Concomitant]
     Active Substance: ACETAMINOPHEN
  4. CYCLOSPORINE. [Concomitant]
     Active Substance: CYCLOSPORINE
  5. AZITHROMYCIN ANHYDROUS. [Concomitant]
     Active Substance: AZITHROMYCIN ANHYDROUS
  6. VITAMIN D [Concomitant]
     Active Substance: VITAMIN D NOS
  7. ELIQUIS [Concomitant]
     Active Substance: APIXABAN
  8. LANTUS SOLOS [Concomitant]

REACTIONS (1)
  - Lower limb fracture [None]

NARRATIVE: CASE EVENT DATE: 20200218
